FAERS Safety Report 21466231 (Version 2)
Quarter: 2022Q4

REPORT INFORMATION
  Report Type: Spontaneous
  Country: JP (occurrence: JP)
  Receive Date: 20221017
  Receipt Date: 20221229
  Transmission Date: 20230113
  Serious: Yes (Other)
  Sender: FDA-Public Use
  Company Number: JP-MYLANLABS-2022M1112067

PATIENT
  Age: 7 Decade
  Sex: Male

DRUGS (4)
  1. CELECOXIB [Suspect]
     Active Substance: CELECOXIB
     Indication: Joint swelling
     Route: 065
  2. CELECOXIB [Suspect]
     Active Substance: CELECOXIB
     Indication: Arthralgia
  3. CELECOXIB [Suspect]
     Active Substance: CELECOXIB
     Indication: Rash erythematous
  4. DICLOFENAC [Suspect]
     Active Substance: DICLOFENAC
     Indication: Headache
     Route: 065

REACTIONS (6)
  - Drug-induced liver injury [Unknown]
  - Pyrexia [Unknown]
  - Oropharyngeal pain [Unknown]
  - Pain in extremity [Unknown]
  - Headache [Unknown]
  - Drug eruption [Recovered/Resolved]
